FAERS Safety Report 5824498-7 (Version None)
Quarter: 2008Q3

REPORT INFORMATION
  Report Type: 
  Country: None (occurrence: None)
  Receive Date: 20080722
  Receipt Date: 20080708
  Transmission Date: 20090109
  Serious: Yes (Other)
  Sender: FDA-Public Use
  Company Number: MIN-00386

PATIENT
  Age: 48 Year
  Sex: Female

DRUGS (3)
  1. MINOCYCLINE HCL [Suspect]
     Indication: RELAPSING-REMITTING MULTIPLE SCLEROSIS
     Dosage: 100 MG TWICE DAILY
  2. MINOCYCLINE HCL [Suspect]
     Indication: RELAPSING-REMITTING MULTIPLE SCLEROSIS
     Dosage: 100 MG TWICE DAILY
  3. ORAL CONTRACEPTIVE [Concomitant]

REACTIONS (2)
  - CAROTID ARTERY DISSECTION [None]
  - ISCHAEMIC CEREBRAL INFARCTION [None]
